FAERS Safety Report 4864001-1 (Version None)
Quarter: 2005Q4

REPORT INFORMATION
  Report Type: 
  Country: None (occurrence: None)
  Receive Date: 20051219
  Receipt Date: 20051208
  Transmission Date: 20060501
  Serious: Yes (Hospitalization)
  Sender: FDA-Public Use
  Company Number: GXKR2005TR02105

PATIENT
  Age: 62 Year
  Sex: Female

DRUGS (3)
  1. RIFAMPIN [Suspect]
     Indication: BRUCELLOSIS
     Dosage: 600 MG
  2. DOXYCYCLINE [Concomitant]
  3. STREPTOMYCIN [Concomitant]

REACTIONS (8)
  - ARTHRALGIA [None]
  - ARTHRITIS [None]
  - ERYTHEMA [None]
  - LUPUS-LIKE SYNDROME [None]
  - PYREXIA [None]
  - SWELLING [None]
  - TEMPOROMANDIBULAR JOINT SYNDROME [None]
  - TENDERNESS [None]
